FAERS Safety Report 7421261-0 (Version None)
Quarter: 2011Q2

REPORT INFORMATION
  Report Type: 
  Country: None (occurrence: None)
  Receive Date: 20110418
  Receipt Date: 20110412
  Transmission Date: 20111010
  Serious: Yes (Hospitalization, Other)
  Sender: FDA-Public Use
  Company Number: BR-ABBOTT-10P-020-0662451-00

PATIENT
  Sex: Male
  Weight: 87 kg

DRUGS (11)
  1. CORTISONE [Concomitant]
     Indication: RHEUMATOID ARTHRITIS
     Route: 048
  2. CAPTOPRIL [Concomitant]
     Indication: HYPERTENSION
     Route: 048
  3. CLOPIDOGREL [Concomitant]
     Indication: VENOUS OCCLUSION
     Route: 048
  4. METFORMIN [Concomitant]
     Route: 048
  5. HUMIRA [Suspect]
     Indication: RHEUMATOID ARTHRITIS
     Route: 058
     Dates: start: 20100101, end: 20100612
  6. CLOPIDOGREL [Concomitant]
     Indication: INFARCTION
  7. METHOTREXATE [Concomitant]
     Indication: RHEUMATOID ARTHRITIS
     Route: 030
  8. ENALAPRIL MALEATE [Concomitant]
     Indication: HYPERTENSION
     Dosage: 0.5 TABLET DAILY
     Route: 048
  9. METFORMIN [Concomitant]
     Indication: DIABETES MELLITUS
     Route: 048
  10. FOLIC ACID [Concomitant]
     Indication: RHEUMATOID ARTHRITIS
     Route: 048
  11. HUMIRA [Suspect]
     Route: 058
     Dates: start: 20110314

REACTIONS (9)
  - INFARCTION [None]
  - VENOUS OCCLUSION [None]
  - COAGULOPATHY [None]
  - BLOOD VISCOSITY INCREASED [None]
  - MUSCULOSKELETAL PAIN [None]
  - DEVICE OCCLUSION [None]
  - ANGINA PECTORIS [None]
  - PAIN [None]
  - DEPRESSION [None]
